FAERS Safety Report 10650798 (Version 1)
Quarter: 2014Q4

REPORT INFORMATION
  Report Type: Spontaneous
  Country: FR (occurrence: FR)
  Receive Date: 20141215
  Receipt Date: 20141215
  Transmission Date: 20150529
  Serious: Yes (Other)
  Sender: FDA-Public Use
  Company Number: PHHY2014FR162349

PATIENT
  Sex: Female

DRUGS (1)
  1. DEXAMETHASONE. [Suspect]
     Active Substance: DEXAMETHASONE
     Indication: ADRENOGENITAL SYNDROME
     Dosage: 15 UG/KG, QD
     Route: 065

REACTIONS (4)
  - Gestational diabetes [Unknown]
  - Skin striae [Unknown]
  - Maternal exposure during pregnancy [Unknown]
  - Hypertension [Unknown]
